FAERS Safety Report 16263258 (Version 3)
Quarter: 2019Q2

REPORT INFORMATION
  Report Type: Spontaneous
  Country: JP (occurrence: JP)
  Receive Date: 20190502
  Receipt Date: 20190619
  Transmission Date: 20190711
  Serious: Yes (Hospitalization, Other)
  Sender: FDA-Public Use
  Company Number: JP-009507513-1904JPN003143J

PATIENT
  Age: 62 Year
  Sex: Male
  Weight: 49 kg

DRUGS (4)
  1. E KEPPRA [Concomitant]
     Active Substance: LEVETIRACETAM
     Indication: SEIZURE
     Dosage: 500 MILLIGRAM, TWICE A DAY
     Route: 048
     Dates: start: 20180727
  2. TAKECAB [Concomitant]
     Active Substance: VONOPRAZAN FUMURATE
     Indication: GASTRIC ULCER
     Dosage: 20 MILLIGRAM, DAILY
     Route: 048
     Dates: start: 20190308
  3. KEYTRUDA [Suspect]
     Active Substance: PEMBROLIZUMAB
     Indication: NON-SMALL CELL LUNG CANCER
     Dosage: 200 MILLIGRAM, EVERY 3 WEEKS
     Route: 041
     Dates: start: 20180919, end: 20190329
  4. PREDONINE [Concomitant]
     Active Substance: PREDNISOLONE
     Indication: SEIZURE
     Dosage: 5 MILLIGRAM, DAILY
     Route: 048
     Dates: start: 20180823

REACTIONS (5)
  - Lung disorder [Recovering/Resolving]
  - Dizziness [Recovered/Resolved]
  - Decreased appetite [Recovered/Resolved]
  - Malignant neoplasm progression [Unknown]
  - Nausea [Unknown]

NARRATIVE: CASE EVENT DATE: 201903
